FAERS Safety Report 5802600-0 (Version None)
Quarter: 2008Q2

REPORT INFORMATION
  Report Type: 
  Country: None (occurrence: None)
  Receive Date: 20080626
  Receipt Date: 20080418
  Transmission Date: 20081010
  Serious: Yes (Hospitalization)
  Sender: FDA-Public Use
  Company Number: US-CVT-080030

PATIENT
  Age: 80 Year
  Sex: Male
  Weight: 83.4 kg

DRUGS (12)
  1. RANEXA [Suspect]
     Indication: ANGINA PECTORIS
     Dosage: ORAL ; 500 MG, BID, ORAL
     Route: 048
     Dates: end: 20070228
  2. RANEXA [Suspect]
     Indication: ANGINA PECTORIS
     Dosage: ORAL ; 500 MG, BID, ORAL
     Route: 048
     Dates: start: 20070228
  3. VYTORIN [Suspect]
     Indication: HYPERCHOLESTEROLAEMIA
     Dosage: 10/80 MG, QD, ORAL
     Route: 048
     Dates: start: 20070201, end: 20070307
  4. PLAVIX [Concomitant]
  5. ATENOLOL [Concomitant]
  6. ALLOPURINOL [Concomitant]
  7. IMDUR [Concomitant]
  8. CHLORDIAZEPOXIDE HCL [Concomitant]
  9. PROTONIX /01263201/ (PANTOPRAZOLE) [Concomitant]
  10. GARLIC (ALLIUM SATIVUM) [Concomitant]
  11. SYNTHROID [Concomitant]
  12. ASPIRIN [Concomitant]

REACTIONS (4)
  - ASTHENIA [None]
  - DRUG INTERACTION [None]
  - FALL [None]
  - RHABDOMYOLYSIS [None]
